FAERS Safety Report 11368573 (Version 5)
Quarter: 2015Q4

REPORT INFORMATION
  Report Type: Spontaneous
  Country: CA (occurrence: CA)
  Receive Date: 20150812
  Receipt Date: 20151201
  Transmission Date: 20160304
  Serious: Yes (Other)
  Sender: FDA-Public Use
  Company Number: PHHY2015CA094099

PATIENT
  Sex: Male

DRUGS (2)
  1. CICLOSPORIN SANDOZ [Suspect]
     Active Substance: CYCLOSPORINE
     Indication: PSORIASIS
     Route: 065
  2. METHOTREXATE [Suspect]
     Active Substance: METHOTREXATE
     Indication: PSORIASIS
     Route: 065

REACTIONS (2)
  - Drug ineffective [Unknown]
  - Hypertension [Recovering/Resolving]
